FAERS Safety Report 10636004 (Version 1)
Quarter: 2014Q4

REPORT INFORMATION
  Report Type: Spontaneous
  Country: IT (occurrence: IT)
  Receive Date: 20141205
  Receipt Date: 20141205
  Transmission Date: 20150529
  Serious: Yes (Other)
  Sender: FDA-Public Use
  Company Number: IT-ACTAVIS-2014-26100

PATIENT
  Age: 68 Year
  Sex: Female
  Weight: 92 kg

DRUGS (6)
  1. 5 FLUOROURACIL                     /00098801/ [Suspect]
     Active Substance: FLUOROURACIL
     Indication: RECTOSIGMOID CANCER
     Dosage: 680 MG, CYCLICAL
     Route: 040
     Dates: start: 20140522, end: 20140809
  2. ERBITUX [Suspect]
     Active Substance: CETUXIMAB
     Indication: RECTOSIGMOID CANCER
     Dosage: 420 MG, CYCLICAL
     Route: 042
     Dates: start: 20140522, end: 20140809
  3. IRINOTECAN (UNKNOWN) [Suspect]
     Active Substance: IRINOTECAN
     Indication: RECTOSIGMOID CANCER
     Dosage: 30 MG, CYCLICAL
     Route: 042
     Dates: start: 20140522, end: 20140809
  4. 5 FLUOROURACIL                     /00098801/ [Suspect]
     Active Substance: FLUOROURACIL
     Dosage: 4080 MG CYCLICAL
     Route: 042
     Dates: start: 20140522, end: 20140809
  5. LEVOFOLINIC ACID [Suspect]
     Active Substance: LEVOLEUCOVORIN
     Indication: RECTOSIGMOID CANCER
     Dosage: 340 MG, CYCLICAL
     Route: 042
     Dates: start: 20140522, end: 20140809
  6. MICARDISPLUS [Concomitant]
     Active Substance: HYDROCHLOROTHIAZIDE\TELMISARTAN
     Indication: HYPERTENSION
     Dosage: 40 MG, UNKNOWN
     Route: 048

REACTIONS (3)
  - Conjunctivitis [Recovering/Resolving]
  - Diarrhoea [Recovering/Resolving]
  - Rash [Not Recovered/Not Resolved]

NARRATIVE: CASE EVENT DATE: 20140614
